FAERS Safety Report 7821598 (Version 5)
Quarter: 2013Q2

REPORT INFORMATION
  Report Type: Report from Study
  Country: CA (occurrence: CA)
  Receive Date: 20110222
  Receipt Date: 20130501
  Transmission Date: 20140414
  Serious: Yes (Other)
  Sender: FDA-Public Use
  Company Number: CA-BRISTOL-MYERS SQUIBB COMPANY-15056468

PATIENT
  Age: 33 Year
  Sex: Female

DRUGS (18)
  1. ORENCIA [Suspect]
     Indication: RHEUMATOID ARTHRITIS
     Dosage: LAST DOSE:07APR2010;5MAY10(1000 MG),18JAN11,06JAN2012,09MAR12?INF:28,EXP:MA2014
     Route: 042
     Dates: start: 20100212
  2. CELEBREX [Concomitant]
  3. METFORMIN [Concomitant]
  4. PARIET [Concomitant]
  5. ADVAIR [Concomitant]
  6. VENTOLIN [Concomitant]
  7. TYLENOL #3 [Concomitant]
  8. AVIANE [Concomitant]
  9. METHOTREXATE [Concomitant]
  10. FOSAMAX [Concomitant]
  11. NASONEX [Concomitant]
  12. NORTRIPTYLINE [Concomitant]
  13. FOLIC ACID [Concomitant]
  14. CALCIUM [Concomitant]
  15. IRON [Concomitant]
  16. ZINC [Concomitant]
  17. VITAMIN C [Concomitant]
  18. VITAMIN B12 [Concomitant]
     Dosage: INJECTION

REACTIONS (6)
  - Pneumonia [Recovering/Resolving]
  - Lower respiratory tract infection [Unknown]
  - Asthma [Unknown]
  - Fatigue [Unknown]
  - Pyrexia [Not Recovered/Not Resolved]
  - Influenza like illness [Not Recovered/Not Resolved]
